FAERS Safety Report 5295185-1 (Version None)
Quarter: 2007Q2

REPORT INFORMATION
  Report Type: 
  Country: None (occurrence: None)
  Receive Date: 20070412
  Receipt Date: 20070403
  Transmission Date: 20071010
  Serious: Yes (Other)
  Sender: FDA-Public Use
  Company Number: FR-ABBOTT-07P-056-0363880-00

PATIENT
  Age: 51 Year
  Sex: Male

DRUGS (14)
  1. RITONAVIR [Suspect]
     Indication: HIV INFECTION
     Route: 065
  2. RITONAVIR [Suspect]
     Indication: PNEUMOCYSTIS JIROVECI INFECTION
  3. LAMIVUDINE + ZIDOVUDINE [Suspect]
     Indication: HIV INFECTION
     Route: 065
  4. LAMIVUDINE + ZIDOVUDINE [Suspect]
     Indication: PNEUMOCYSTIS JIROVECI INFECTION
  5. FOSAMPRENAVIR [Suspect]
     Indication: HIV INFECTION
     Route: 065
  6. FOSAMPRENAVIR [Suspect]
     Indication: PNEUMOCYSTIS JIROVECI INFECTION
  7. ISONIAZID [Suspect]
     Indication: DISSEMINATED TUBERCULOSIS
     Route: 065
  8. RIFAMPICIN [Suspect]
     Indication: DISSEMINATED TUBERCULOSIS
     Route: 065
  9. PYRAZINAMIDE [Suspect]
     Indication: DISSEMINATED TUBERCULOSIS
     Route: 065
  10. ETHAMBUTOL HYDROCHLORIDE [Suspect]
     Indication: DISSEMINATED TUBERCULOSIS
     Route: 065
  11. MOXIFLOXACIN HCL [Suspect]
     Indication: DISSEMINATED TUBERCULOSIS
     Route: 065
  12. BACTRIM [Concomitant]
     Indication: HIV INFECTION
     Route: 065
  13. BACTRIM [Concomitant]
     Indication: PNEUMOCYSTIS JIROVECI INFECTION
  14. FLOROQUINOLONE [Concomitant]
     Indication: DRUG USE FOR UNKNOWN INDICATION
     Route: 065

REACTIONS (2)
  - IMMUNE RECONSTITUTION SYNDROME [None]
  - NEPHRITIS INTERSTITIAL [None]
